FAERS Safety Report 13789494 (Version 1)
Quarter: 2017Q3

REPORT INFORMATION
  Report Type: Spontaneous
  Country: US (occurrence: US)
  Receive Date: 20170725
  Receipt Date: 20170725
  Transmission Date: 20171127
  Serious: No
  Sender: FDA-Public Use
  Company Number: US-UNITED THERAPEUTICS-UNT-2017-003275

PATIENT
  Sex: Female
  Weight: 64.85 kg

DRUGS (2)
  1. COUMADIN [Concomitant]
     Active Substance: WARFARIN SODIUM
     Indication: PRODUCT USED FOR UNKNOWN INDICATION
  2. ORENITRAM [Suspect]
     Active Substance: TREPROSTINIL
     Indication: PULMONARY ARTERIAL HYPERTENSION
     Dosage: 0.75 MG, TID
     Route: 048
     Dates: start: 20161103

REACTIONS (6)
  - Diarrhoea [Recovered/Resolved]
  - Tricuspid valve incompetence [Unknown]
  - Feeling abnormal [Recovered/Resolved]
  - Blood creatinine increased [Unknown]
  - Hyperglycaemia [Unknown]
  - Headache [Recovered/Resolved]
